FAERS Safety Report 4602418-0 (Version None)
Quarter: 2005Q1

REPORT INFORMATION
  Report Type: 
  Country: None (occurrence: None)
  Receive Date: 20050309
  Receipt Date: 20050228
  Transmission Date: 20050727
  Serious: Yes (Other)
  Sender: FDA-Public Use
  Company Number: PHFR2005GB01057

PATIENT
  Age: 3 Year
  Sex: Male

DRUGS (1)
  1. TERBINAFINE HCL [Suspect]
     Indication: NAIL TINEA
     Dosage: 62.5MG/DAY
     Route: 048
     Dates: start: 20040917, end: 20041008

REACTIONS (1)
  - HAEMATOCHEZIA [None]
